FAERS Safety Report 7041074-1 (Version None)
Quarter: 2010Q3

REPORT INFORMATION
  Report Type: 
  Country: None (occurrence: None)
  Receive Date: 20100929
  Receipt Date: 20100616
  Transmission Date: 20110219
  Serious: No
  Sender: FDA-Public Use
  Company Number: US-WYE-H15738810

PATIENT
  Age: 53 Year
  Sex: Female
  Weight: 68.1 kg

DRUGS (2)
  1. PRISTIQ [Suspect]
     Indication: ANXIETY
     Dosage: 50 MG 1X PER 1 DAY
     Dates: end: 20100601
  2. PRISTIQ [Suspect]
     Indication: BIPOLAR I DISORDER
     Dosage: 50 MG 1X PER 1 DAY
     Dates: end: 20100601

REACTIONS (9)
  - ASTHENIA [None]
  - CRYING [None]
  - DEPRESSION [None]
  - DISTURBANCE IN ATTENTION [None]
  - DRUG WITHDRAWAL SYNDROME [None]
  - IRRITABILITY [None]
  - PARAESTHESIA [None]
  - SOCIAL AVOIDANT BEHAVIOUR [None]
  - THINKING ABNORMAL [None]
